FAERS Safety Report 6417667-9 (Version None)
Quarter: 2009Q4

REPORT INFORMATION
  Report Type: 
  Country: None (occurrence: None)
  Receive Date: 20091028
  Receipt Date: 20091015
  Transmission Date: 20100525
  Serious: Yes (Other)
  Sender: FDA-Public Use
  Company Number: PHHY2009JP29450

PATIENT
  Age: 66 Year
  Sex: Male

DRUGS (1)
  1. RESCULA [Suspect]
     Indication: GLAUCOMA
     Dosage: 4 DROPS DAILY
     Dates: start: 20050214, end: 20090306

REACTIONS (1)
  - PUNCTATE KERATITIS [None]
